FAERS Safety Report 8271224-0 (Version None)
Quarter: 2012Q1

REPORT INFORMATION
  Report Type: 
  Country: None (occurrence: None)
  Receive Date: 20120327
  Receipt Date: 20100406
  Transmission Date: 20120608
  Serious: Yes (Hospitalization)
  Sender: FDA-Public Use
  Company Number: PHEH2009US18722

PATIENT
  Age: 62 Year
  Sex: Female
  Weight: 108.8 kg

DRUGS (26)
  1. PROZAC [Concomitant]
  2. ZANTAC [Concomitant]
  3. GLEEVEC [Suspect]
     Indication: CHRONIC MYELOID LEUKAEMIA
     Dosage: 400 MG, DAILY, ORAL
     Route: 048
     Dates: start: 20091007
  4. CALCIUM /01483701/  (CALCIUM, COLECALCIFEROL) [Concomitant]
  5. LYRICA [Concomitant]
  6. NYSTATIN [Concomitant]
  7. BACLOFEN [Concomitant]
  8. LIDOCAINE [Concomitant]
  9. NORCO [Concomitant]
  10. AMITIZA [Concomitant]
  11. DYAZIDE [Concomitant]
  12. VITAMIN D [Concomitant]
  13. ASPIRIN [Concomitant]
  14. ELAVIL [Concomitant]
  15. XANAX [Concomitant]
  16. WELLBUTRIN [Concomitant]
  17. FLAXSEED OIL (LINUM USITATISSIMUM SEED OIL) [Concomitant]
  18. PRILOSEC [Concomitant]
  19. ZINC (ZINC) [Concomitant]
  20. PROMETHAZINE [Concomitant]
  21. PERCOCET [Concomitant]
  22. PREMARIN [Concomitant]
  23. KLONOPIN [Concomitant]
  24. FORTICAL /KOR/ (BACILLUS SUBTILIS, STREPTOCOCCUS FAECALIS) [Concomitant]
  25. NASACORT AQ (TRIAMCINOLONE ACETONIDE) [Concomitant]
  26. TOPAMAX [Concomitant]

REACTIONS (7)
  - MYALGIA [None]
  - FLUID RETENTION [None]
  - DIARRHOEA [None]
  - WEIGHT INCREASED [None]
  - SWELLING [None]
  - MUSCLE SPASMS [None]
  - OEDEMA [None]
